FAERS Safety Report 8069537-0 (Version None)
Quarter: 2012Q1

REPORT INFORMATION
  Report Type: 
  Country: None (occurrence: None)
  Receive Date: 20120125
  Receipt Date: 20120118
  Transmission Date: 20120608
  Serious: Yes (Hospitalization)
  Sender: FDA-Public Use
  Company Number: JP-SANOFI-AVENTIS-2012SA001601

PATIENT
  Age: 64 Year
  Sex: Female
  Weight: 37 kg

DRUGS (16)
  1. DIGOXIN [Concomitant]
     Indication: ATRIAL FIBRILLATION
     Route: 048
     Dates: start: 20111021, end: 20120105
  2. LANSOPRAZOLE [Concomitant]
     Indication: GASTRIC CANCER
     Route: 048
     Dates: end: 20120105
  3. OXALIPLATIN [Suspect]
     Route: 041
     Dates: start: 20111130
  4. OXALIPLATIN [Suspect]
     Route: 041
     Dates: start: 20111222
  5. OXALIPLATIN [Suspect]
     Route: 041
     Dates: start: 20111108
  6. GIMERACIL/OTERACIL POTASSIUM/TEGAFUR [Suspect]
     Route: 048
     Dates: start: 20111130
  7. PRIMPERAN TAB [Concomitant]
     Indication: NAUSEA
     Route: 048
     Dates: end: 20120105
  8. MAXIPIME [Concomitant]
     Route: 042
     Dates: start: 20120105
  9. GIMERACIL/OTERACIL POTASSIUM/TEGAFUR [Suspect]
     Route: 048
     Dates: start: 20111108
  10. SOLUTIONS FOR PARENTERAL NUTRITION [Concomitant]
     Indication: DECREASED APPETITE
     Route: 048
     Dates: start: 20111012, end: 20120105
  11. GRAN [Concomitant]
     Route: 042
     Dates: start: 20120105, end: 20120107
  12. OXALIPLATIN [Suspect]
     Indication: GASTRIC CANCER
     Route: 041
     Dates: start: 20111007
  13. GIMERACIL/OTERACIL POTASSIUM/TEGAFUR [Suspect]
     Route: 048
     Dates: start: 20111222
  14. GIMERACIL/OTERACIL POTASSIUM/TEGAFUR [Suspect]
     Indication: GASTRIC CANCER
     Route: 048
     Dates: start: 20111007
  15. BROTIZOLAM [Concomitant]
     Indication: INSOMNIA
     Route: 048
     Dates: end: 20120104
  16. LOXONIN [Concomitant]
     Indication: GASTRIC CANCER
     Route: 048
     Dates: end: 20120105

REACTIONS (2)
  - FEBRILE NEUTROPENIA [None]
  - PNEUMATOSIS INTESTINALIS [None]
